FAERS Safety Report 14202016 (Version 1)
Quarter: 2017Q4

REPORT INFORMATION
  Report Type: Other
  Country: US (occurrence: US)
  Receive Date: 20171117
  Receipt Date: 20171117
  Transmission Date: 20180321
  Serious: No
  Sender: FDA-Public Use
  Company Number: US-MAYNE PHARMA-2017MYN001522

PATIENT

DRUGS (1)
  1. MORPHINE SULFATE. [Suspect]
     Active Substance: MORPHINE SULFATE
     Indication: PRODUCT USED FOR UNKNOWN INDICATION
     Route: 048

REACTIONS (7)
  - Disturbance in attention [Unknown]
  - Unevaluable event [Unknown]
  - Product substitution issue [Unknown]
  - Product formulation issue [Unknown]
  - Dizziness [Unknown]
  - Product physical issue [Unknown]
  - Tremor [Unknown]
